FAERS Safety Report 21375164 (Version 1)
Quarter: 2022Q3

REPORT INFORMATION
  Report Type: Report from Study
  Country: US (occurrence: US)
  Receive Date: 20220926
  Receipt Date: 20220926
  Transmission Date: 20221026
  Serious: Yes (Other)
  Sender: FDA-Public Use
  Company Number: US-CIPLA LTD.-2022US05769

PATIENT

DRUGS (3)
  1. AZACITIDINE [Suspect]
     Active Substance: AZACITIDINE
     Indication: Acute myeloid leukaemia
     Dosage: 75 MILLIGRAM/SQ. METER, CYCLE {{ON DAYS (D) 1-7, OR D1-5+D8-9, OR D1-6+D8 OF A 28-DAY CYCLE}}
     Route: 065
  2. VENETOCLAX [Suspect]
     Active Substance: VENETOCLAX
     Indication: Acute myeloid leukaemia
     Dosage: 400 MILLIGRAM, QD (EVERY DAY)
     Route: 065
  3. SABATOLIMAB [Suspect]
     Active Substance: SABATOLIMAB
     Indication: Acute myeloid leukaemia
     Dosage: 800 MILLIGRAM, EVERY 4 WEEKS
     Route: 065

REACTIONS (1)
  - Myocarditis [Unknown]
